FAERS Safety Report 6983197-9 (Version None)
Quarter: 2010Q3

REPORT INFORMATION
  Report Type: 
  Country: None (occurrence: None)
  Receive Date: 20100914
  Receipt Date: 20100701
  Transmission Date: 20110219
  Serious: No
  Sender: FDA-Public Use
  Company Number: US-PFIZER INC-2010083180

PATIENT
  Sex: Female
  Weight: 56.6 kg

DRUGS (2)
  1. LYRICA [Suspect]
     Indication: ARTHRALGIA
     Dosage: 75 MG, 2X/DAY
     Route: 048
     Dates: start: 20100630
  2. NORCO [Concomitant]
     Indication: ARTHRALGIA
     Dosage: UNK

REACTIONS (1)
  - INCREASED APPETITE [None]
